FAERS Safety Report 16411009 (Version 1)
Quarter: 2019Q2

REPORT INFORMATION
  Report Type: Spontaneous
  Country: IN (occurrence: IN)
  Receive Date: 20190610
  Receipt Date: 20190610
  Transmission Date: 20190711
  Serious: Yes (Hospitalization)
  Sender: FDA-Public Use
  Company Number: IN-NORTHSTAR HEALTHCARE HOLDINGS-IN-2019NSR000125

PATIENT
  Age: 30 Year
  Sex: Female

DRUGS (1)
  1. BACLOFEN. [Suspect]
     Active Substance: BACLOFEN
     Indication: PRODUCT USED FOR UNKNOWN INDICATION
     Dosage: 300 MG, UNK
     Route: 048

REACTIONS (4)
  - Catatonia [Recovered/Resolved]
  - Suicide attempt [Unknown]
  - Psychotic disorder [Recovered/Resolved]
  - Intentional overdose [Unknown]
